FAERS Safety Report 9282158 (Version 1)
Quarter: 2013Q2

REPORT INFORMATION
  Report Type: Spontaneous
  Country: US (occurrence: None)
  Receive Date: 20130508
  Receipt Date: 20130508
  Transmission Date: 20140414
  Serious: Yes (Hospitalization)
  Sender: FDA-Public Use
  Company Number: None

PATIENT
  Age: 75 Year
  Sex: Male
  Weight: 72.12 kg

DRUGS (2)
  1. WARFARIN [Suspect]
     Indication: ATRIAL FIBRILLATION
     Route: 048
     Dates: start: 20090422, end: 20100106
  2. IBUPROFEN [Suspect]
     Indication: PAIN
     Route: 048

REACTIONS (4)
  - International normalised ratio increased [None]
  - Haemorrhage [None]
  - Anaemia [None]
  - Wrong drug administered [None]
